FAERS Safety Report 12188877 (Version 1)
Quarter: 2016Q1

REPORT INFORMATION
  Report Type: Spontaneous
  Country: US (occurrence: US)
  Receive Date: 20160317
  Receipt Date: 20160317
  Transmission Date: 20160526
  Serious: No
  Sender: FDA-Public Use
  Company Number: US-PERRIGO-15US004446

PATIENT
  Age: 29 Year
  Sex: Female
  Weight: 113.38 kg

DRUGS (10)
  1. TESTOSTERONE CYPIONATE. [Suspect]
     Active Substance: TESTOSTERONE CYPIONATE
     Dosage: 50 MG, SINGLE
     Route: 058
     Dates: start: 20150312, end: 20150312
  2. TESTOSTERONE CYPIONATE. [Suspect]
     Active Substance: TESTOSTERONE CYPIONATE
     Indication: ALLERGY TEST
     Dosage: 50 MG, SINGLE
     Route: 058
     Dates: start: 20150410, end: 20150410
  3. TESTOSTERONE CYPIONATE. [Suspect]
     Active Substance: TESTOSTERONE CYPIONATE
     Dosage: 50 MG, SINGLE
     Route: 058
     Dates: start: 20150319, end: 20150319
  4. TESTOSTERONE CYPIONATE. [Suspect]
     Active Substance: TESTOSTERONE CYPIONATE
     Dosage: 50 MG, SINGLE
     Route: 058
     Dates: start: 20150416, end: 20150416
  5. TESTOSTERONE CYPIONATE. [Suspect]
     Active Substance: TESTOSTERONE CYPIONATE
     Dosage: UNKNOWN, SINGLE
     Route: 061
     Dates: start: 20150423, end: 20150423
  6. TESTOSTERONE CYPIONATE. [Suspect]
     Active Substance: TESTOSTERONE CYPIONATE
     Indication: TRANSGENDER HORMONAL THERAPY
     Dosage: 50 MG, SINGLE
     Route: 058
     Dates: start: 20150305, end: 20150305
  7. TESTOSTERONE CYPIONATE. [Suspect]
     Active Substance: TESTOSTERONE CYPIONATE
     Dosage: 50 MG, SINGLE
     Route: 058
     Dates: start: 20150326, end: 20150326
  8. BUPROPION. [Concomitant]
     Active Substance: BUPROPION
     Indication: DEPRESSION
     Dosage: UNK
     Route: 065
     Dates: start: 2013
  9. TESTOSTERONE CYPIONATE. [Suspect]
     Active Substance: TESTOSTERONE CYPIONATE
     Indication: TRANSGENDER HORMONAL THERAPY
     Dosage: 50 MG, SINGLE
     Route: 058
     Dates: start: 20150404, end: 20150404
  10. ZYRTEC [Concomitant]
     Active Substance: CETIRIZINE HYDROCHLORIDE
     Indication: PERENNIAL ALLERGY
     Dosage: UNK
     Route: 065
     Dates: start: 2010

REACTIONS (6)
  - Drug administered at inappropriate site [Recovered/Resolved]
  - Injection site nodule [Recovering/Resolving]
  - Off label use [Recovered/Resolved]
  - Injection site pain [Recovering/Resolving]
  - Injection site erythema [Recovering/Resolving]
  - Injection site pruritus [Recovering/Resolving]

NARRATIVE: CASE EVENT DATE: 20150305
